FAERS Safety Report 4288353-9 (Version None)
Quarter: 2004Q1

REPORT INFORMATION
  Report Type: 
  Country: None (occurrence: None)
  Receive Date: 20040205
  Receipt Date: 20040112
  Transmission Date: 20041129
  Serious: Yes (Other)
  Sender: FDA-Public Use
  Company Number: M2004.6953

PATIENT
  Age: 53 Year
  Sex: Female

DRUGS (4)
  1. METRONIDAZOLE [Suspect]
     Indication: POSTOPERATIVE INFECTION
     Dosage: 500 MG, UNK, ORAL
     Route: 048
     Dates: start: 20031230, end: 20031231
  2. CEFATAXIME [Concomitant]
  3. PARACETAMOL [Concomitant]
  4. ENAXAPARIN [Concomitant]

REACTIONS (2)
  - ANAPHYLACTIC REACTION [None]
  - BRONCHOSPASM [None]
